FAERS Safety Report 25509566 (Version 1)
Quarter: 2025Q3

REPORT INFORMATION
  Report Type: Spontaneous
  Country: US (occurrence: None)
  Receive Date: 20250702
  Receipt Date: 20250702
  Transmission Date: 20251020
  Serious: No
  Sender: FDA-CTU
  Company Number: None

PATIENT
  Age: 36 Year
  Sex: Female
  Weight: 63 kg

DRUGS (2)
  1. TERBINAFINE [Suspect]
     Active Substance: TERBINAFINE
     Indication: Fungal infection
     Route: 048
  2. OLANZAPINE [Concomitant]
     Active Substance: OLANZAPINE

REACTIONS (15)
  - Breast enlargement [None]
  - Abdominal wall disorder [None]
  - Breast pain [None]
  - Fatigue [None]
  - Movement disorder [None]
  - Musculoskeletal disorder [None]
  - Swelling face [None]
  - Pallor [None]
  - Visual impairment [None]
  - Vision blurred [None]
  - Dyspnoea [None]
  - Gait disturbance [None]
  - Hypersensitivity [None]
  - Swollen tongue [None]
  - Panic attack [None]

NARRATIVE: CASE EVENT DATE: 20250201
